FAERS Safety Report 5826373-0 (Version None)
Quarter: 2008Q3

REPORT INFORMATION
  Report Type: 
  Country: None (occurrence: None)
  Receive Date: 20080729
  Receipt Date: 20080709
  Transmission Date: 20090109
  Serious: No
  Sender: FDA-Public Use
  Company Number: US-BOEHRINGER INGELHEIM GMBH, GERMANY-2008-BP-10714BP

PATIENT
  Age: 11 Year
  Sex: Male

DRUGS (1)
  1. CATAPRES-TTS-1 [Suspect]
     Indication: TIC
     Route: 062
     Dates: start: 20070101

REACTIONS (2)
  - DRUG EFFECT DECREASED [None]
  - SLEEP DISORDER [None]
